FAERS Safety Report 11071178 (Version 1)
Quarter: 2015Q2

REPORT INFORMATION
  Report Type: Spontaneous
  Country: FR (occurrence: FR)
  Receive Date: 20150428
  Receipt Date: 20150428
  Transmission Date: 20150821
  Serious: Yes (Hospitalization)
  Sender: FDA-Public Use
  Company Number: FR-PFIZER INC-2015132140

PATIENT
  Age: 55 Year
  Sex: Female
  Weight: 73 kg

DRUGS (11)
  1. BOSULIF [Suspect]
     Active Substance: BOSUTINIB MONOHYDRATE
     Dosage: 400 MG, 1X/DAY
     Route: 048
     Dates: start: 20150220, end: 20150226
  2. BOSULIF [Suspect]
     Active Substance: BOSUTINIB MONOHYDRATE
     Dosage: 300 MG, 1X/DAY
     Route: 048
     Dates: start: 201502, end: 201502
  3. NOVONORM [Concomitant]
     Active Substance: REPAGLINIDE
     Dosage: 2 MG, 3X/DAY
  4. TIORFAN [Concomitant]
     Active Substance: RACECADOTRIL
     Dosage: 1 DF, 3X/DAY (AS NEEDED)
  5. BOSULIF [Suspect]
     Active Substance: BOSUTINIB MONOHYDRATE
     Indication: CHRONIC MYELOID LEUKAEMIA
     Dosage: 100 MG, 1X/DAY
     Route: 048
     Dates: start: 201502, end: 201502
  6. TAHOR [Suspect]
     Active Substance: ATORVASTATIN CALCIUM
     Indication: DYSLIPIDAEMIA
     Dosage: 10 MG, 1X/DAY
     Route: 048
     Dates: end: 20150226
  7. SMECTA [Concomitant]
     Active Substance: MONTMORILLONITE
     Dosage: 2 DF, 3X/DAY (AS NEEDED)
  8. UVEDOSE [Concomitant]
     Active Substance: CHOLECALCIFEROL
     Dosage: 1 DF, MONTHLY
  9. COTRIATEC [Concomitant]
     Active Substance: HYDROCHLOROTHIAZIDE\RAMIPRIL
     Dosage: 5/12.5 MG 1X/DAY
  10. TARDYFERON B9 [Concomitant]
     Active Substance: FERROUS SULFATE\FOLIC ACID
     Dosage: 1 DF, 2X/DAY
  11. BOSULIF [Suspect]
     Active Substance: BOSUTINIB MONOHYDRATE
     Dosage: 200 MG, 1X/DAY
     Route: 048
     Dates: start: 201502, end: 201502

REACTIONS (6)
  - Pancreatitis acute [Recovering/Resolving]
  - Diarrhoea [Recovering/Resolving]
  - Diabetes mellitus inadequate control [Unknown]
  - Hepatocellular injury [Recovering/Resolving]
  - Acute kidney injury [Recovering/Resolving]
  - Drug-induced liver injury [Unknown]

NARRATIVE: CASE EVENT DATE: 20150223
